FAERS Safety Report 17691644 (Version 1)
Quarter: 2020Q2

REPORT INFORMATION
  Report Type: Spontaneous
  Country: US (occurrence: US)
  Receive Date: 20200422
  Receipt Date: 20200422
  Transmission Date: 20200714
  Serious: No
  Sender: FDA-Public Use
  Company Number: US-ALLERGAN-2013-001371

PATIENT
  Age: 54 Year
  Sex: Female

DRUGS (1)
  1. ATELVIA [Suspect]
     Active Substance: RISEDRONATE SODIUM
     Indication: OSTEOARTHRITIS
     Dosage: 35 MG, Q WEEK
     Route: 048
     Dates: start: 2013

REACTIONS (7)
  - Dyspnoea [Unknown]
  - Hypersensitivity [Unknown]
  - Chest pain [Unknown]
  - Off label use [Unknown]
  - Throat tightness [Unknown]
  - Myalgia [Unknown]
  - Arthralgia [Unknown]

NARRATIVE: CASE EVENT DATE: 2013
